FAERS Safety Report 7721639-1 (Version None)
Quarter: 2011Q3

REPORT INFORMATION
  Report Type: 
  Country: None (occurrence: None)
  Receive Date: 20110831
  Receipt Date: 20110819
  Transmission Date: 20111222
  Serious: Yes (Hospitalization)
  Sender: FDA-Public Use
  Company Number: US-GLAXOSMITHKLINE-A0755254A

PATIENT
  Sex: Male

DRUGS (6)
  1. TRENTAL [Concomitant]
  2. GLUCOPHAGE [Concomitant]
  3. AVANDIA [Suspect]
     Indication: TYPE 2 DIABETES MELLITUS
     Dosage: 4MG PER DAY
     Route: 048
     Dates: start: 20010101, end: 20050701
  4. AVANDAMET [Suspect]
     Indication: TYPE 2 DIABETES MELLITUS
     Route: 048
     Dates: start: 20050101
  5. FIORICET [Concomitant]
  6. MONOPRIL [Concomitant]

REACTIONS (8)
  - ANXIETY [None]
  - HEADACHE [None]
  - DYSPNOEA [None]
  - DIZZINESS [None]
  - ASTHENIA [None]
  - CHEST PAIN [None]
  - MYOCARDIAL INFARCTION [None]
  - VISION BLURRED [None]
